FAERS Safety Report 6407938-4 (Version None)
Quarter: 2009Q4

REPORT INFORMATION
  Report Type: 
  Country: None (occurrence: None)
  Receive Date: 20091008
  Receipt Date: 20091001
  Transmission Date: 20100525
  Serious: Yes (Other)
  Sender: FDA-Public Use
  Company Number: CHNY2009DE03268

PATIENT
  Age: 21 Year
  Sex: Female
  Weight: 58 kg

DRUGS (2)
  1. NICOTINE [Suspect]
     Indication: SMOKING CESSATION THERAPY
     Dosage: 14 MG, QD, TRANSDERMAL, 7 MG, QD, TRANSDERMAL
     Route: 062
     Dates: start: 20090724, end: 20090801
  2. NICOTINE [Suspect]
     Indication: SMOKING CESSATION THERAPY
     Dosage: 14 MG, QD, TRANSDERMAL, 7 MG, QD, TRANSDERMAL
     Route: 062
     Dates: start: 20090801, end: 20090801

REACTIONS (11)
  - AGGRESSION [None]
  - APATHY [None]
  - DEPRESSION [None]
  - DISTURBANCE IN ATTENTION [None]
  - FATIGUE [None]
  - IRRITABILITY [None]
  - LEARNING DISABILITY [None]
  - MOVEMENT DISORDER [None]
  - NERVOUSNESS [None]
  - SOMNOLENCE [None]
  - WRONG TECHNIQUE IN DRUG USAGE PROCESS [None]
